FAERS Safety Report 9144217 (Version 1)
Quarter: 2013Q1

REPORT INFORMATION
  Report Type: Spontaneous
  Country: US (occurrence: US)
  Receive Date: 20130306
  Receipt Date: 20130306
  Transmission Date: 20140127
  Serious: Yes (Hospitalization, Other)
  Sender: FDA-Public Use
  Company Number: US-ALEXION PHARMACEUTICALS INC.-A201300323

PATIENT
  Age: 21 Year
  Sex: Female

DRUGS (5)
  1. SOLIRIS 300MG [Suspect]
     Indication: PAROXYSMAL NOCTURNAL HAEMOGLOBINURIA
     Dosage: 900 MG, Q2W
     Route: 042
     Dates: start: 20121228
  2. SOLIRIS 300MG [Suspect]
     Dosage: 1200 MG, Q2W
     Route: 042
     Dates: start: 20120323, end: 20121228
  3. SOLIRIS 300MG [Suspect]
     Dosage: 900 MG, Q2W
     Route: 042
     Dates: start: 20100903, end: 20120323
  4. LOVENOX [Concomitant]
  5. TRAMADOL [Concomitant]

REACTIONS (4)
  - Ovarian cyst [Unknown]
  - Appendicectomy [Unknown]
  - Transfusion [Recovered/Resolved]
  - Urinary tract infection [Unknown]
